FAERS Safety Report 8012943-0 (Version None)
Quarter: 2011Q4

REPORT INFORMATION
  Report Type: 
  Country: None (occurrence: None)
  Receive Date: 20111223
  Receipt Date: 20111223
  Transmission Date: 20120403
  Serious: Yes (Life-Threatening)
  Sender: FDA-Public Use
  Company Number: None

PATIENT
  Age: 80 Year
  Sex: Male
  Weight: 105.7 kg

DRUGS (2)
  1. WARFARIN SODIUM [Suspect]
     Indication: ATRIAL FIBRILLATION
     Dosage: 2 MG UD PO
     Route: 048
     Dates: start: 20110311, end: 20111202
  2. WARFARIN SODIUM [Suspect]
     Indication: DEEP VEIN THROMBOSIS
     Dosage: 2 MG UD PO
     Route: 048
     Dates: start: 20110311, end: 20111202

REACTIONS (8)
  - OEDEMA PERIPHERAL [None]
  - LACERATION [None]
  - CONTUSION [None]
  - ASTHENIA [None]
  - HAEMORRHAGE INTRACRANIAL [None]
  - FALL [None]
  - BLOOD GLUCOSE INCREASED [None]
  - HAEMATOMA [None]
